FAERS Safety Report 6663730-7 (Version None)
Quarter: 2010Q2

REPORT INFORMATION
  Report Type: 
  Country: None (occurrence: None)
  Receive Date: 20100401
  Receipt Date: 20100322
  Transmission Date: 20101027
  Serious: Yes (Other)
  Sender: FDA-Public Use
  Company Number: CA-PFIZER INC-2010037382

PATIENT
  Sex: Female

DRUGS (3)
  1. NORVASC [Suspect]
     Indication: BLOOD PRESSURE
     Route: 048
  2. ATENOLOL [Concomitant]
  3. LIPITOR [Concomitant]

REACTIONS (5)
  - CHOKING [None]
  - DYSPHONIA [None]
  - HYPOACUSIS [None]
  - OROPHARYNGEAL PAIN [None]
  - VOMITING [None]
